FAERS Safety Report 6089089-4 (Version None)
Quarter: 2009Q1

REPORT INFORMATION
  Report Type: 
  Country: None (occurrence: None)
  Receive Date: 20090224
  Receipt Date: 20090220
  Transmission Date: 20090719
  Serious: Yes (Death)
  Sender: FDA-Public Use
  Company Number: JP-JNJFOC-20090204911

PATIENT
  Sex: Female
  Weight: 40 kg

DRUGS (33)
  1. ITRIZOLE [Suspect]
     Route: 042
  2. ITRIZOLE [Suspect]
     Route: 042
  3. ITRIZOLE [Suspect]
     Indication: DRUG USE FOR UNKNOWN INDICATION
     Route: 042
  4. ITRIZOLE [Suspect]
     Route: 048
  5. LASIX [Suspect]
     Route: 042
  6. LASIX [Suspect]
     Indication: CARDIAC FAILURE
     Route: 042
  7. DOGMATYL [Concomitant]
     Indication: GASTRIC ULCER
     Route: 048
  8. NORVASC [Concomitant]
     Indication: HYPERTENSION
     Route: 048
  9. MEROPEN [Concomitant]
     Indication: SEPSIS
     Route: 042
  10. BAKTAR [Concomitant]
     Route: 048
  11. BAKTAR [Concomitant]
     Indication: SEPSIS
     Route: 048
  12. MUCOSTA [Concomitant]
     Indication: GASTRIC ULCER
     Route: 048
  13. GASTER D [Concomitant]
     Indication: GASTRIC ULCER
     Route: 048
  14. SERMION [Concomitant]
     Indication: CEREBRAL INFARCTION
     Route: 048
  15. NEUQUINON [Concomitant]
     Indication: CEREBRAL INFARCTION
     Route: 048
  16. MYSLEE [Concomitant]
     Route: 048
  17. MYSLEE [Concomitant]
     Indication: INSOMNIA
     Route: 048
  18. CYANOCOBALAMIN [Concomitant]
     Indication: NEUROPATHY PERIPHERAL
     Route: 048
  19. BIO-THREE [Concomitant]
     Indication: ENTEROCOLITIS
     Route: 048
  20. MUCOSOLVAN [Concomitant]
     Indication: BRONCHITIS
     Route: 048
  21. TAKEPRON [Concomitant]
     Route: 048
  22. TAKEPRON [Concomitant]
     Indication: GASTRIC ULCER
     Route: 048
  23. ALBUMIN (HUMAN) [Concomitant]
     Indication: HYPOALBUMINAEMIA
     Route: 042
  24. PREDONINE [Concomitant]
     Indication: ACUTE LYMPHOCYTIC LEUKAEMIA
     Route: 048
  25. ZYLORIC [Concomitant]
     Route: 048
  26. ZYLORIC [Concomitant]
     Indication: HYPERURICAEMIA
     Route: 048
  27. BIOSMIN [Concomitant]
     Indication: ENTEROCOLITIS
     Route: 048
  28. ALDACTONE [Concomitant]
     Indication: CARDIAC FAILURE
     Route: 048
  29. KYTRIL [Concomitant]
     Indication: ACUTE LYMPHOCYTIC LEUKAEMIA
     Route: 042
  30. ENDOXAN [Concomitant]
     Indication: ACUTE LYMPHOCYTIC LEUKAEMIA
     Route: 042
  31. ADRIACIN [Concomitant]
     Indication: ACUTE LYMPHOCYTIC LEUKAEMIA
     Route: 042
  32. ONCOVIN [Concomitant]
     Indication: ACUTE LYMPHOCYTIC LEUKAEMIA
     Route: 042
  33. GRAN [Concomitant]
     Indication: NEUTROPENIA
     Route: 058

REACTIONS (6)
  - ACUTE LYMPHOCYTIC LEUKAEMIA [None]
  - ALANINE AMINOTRANSFERASE INCREASED [None]
  - ASPARTATE AMINOTRANSFERASE INCREASED [None]
  - BLOOD SODIUM ABNORMAL [None]
  - BLOOD UREA ABNORMAL [None]
  - GAMMA-GLUTAMYLTRANSFERASE INCREASED [None]
